FAERS Safety Report 10024269 (Version 1)
Quarter: 2014Q1

REPORT INFORMATION
  Report Type: Spontaneous
  Country: NO (occurrence: NO)
  Receive Date: 20140320
  Receipt Date: 20140320
  Transmission Date: 20141002
  Serious: Yes (Death, Hospitalization, Other)
  Sender: FDA-Public Use
  Company Number: NO-PFIZER INC-2014080175

PATIENT
  Age: 71 Year
  Sex: Female

DRUGS (6)
  1. CELEBRA [Suspect]
     Indication: PROCEDURAL PAIN
     Dosage: UNK MG, UNK
     Route: 048
     Dates: start: 20140107
  2. PARACET [Concomitant]
     Route: 048
  3. DUROGESIC [Concomitant]
     Route: 048
  4. IMOVANE [Concomitant]
     Route: 048
  5. EXFORGE [Concomitant]
     Dosage: DOSAGE 10/160
     Route: 048
  6. SOMAC [Concomitant]
     Route: 048

REACTIONS (4)
  - Gastric ulcer perforation [Fatal]
  - Septic shock [Fatal]
  - Nausea [Unknown]
  - Vomiting [Unknown]
